FAERS Safety Report 7779346-5 (Version None)
Quarter: 2011Q3

REPORT INFORMATION
  Report Type: 
  Country: None (occurrence: None)
  Receive Date: 20110926
  Receipt Date: 20090209
  Transmission Date: 20111222
  Serious: Yes (Hospitalization, Other)
  Sender: FDA-Public Use
  Company Number: PHHY2009TW60894

PATIENT
  Sex: Male

DRUGS (2)
  1. GLEEVEC [Suspect]
     Indication: GASTROINTESTINAL STROMAL TUMOUR
     Dosage: 400 MG
     Route: 048
     Dates: start: 20081030
  2. GLEEVEC [Suspect]
     Dosage: 400 MG

REACTIONS (16)
  - WOUND SECRETION [None]
  - WOUND COMPLICATION [None]
  - PARAESTHESIA [None]
  - DYSURIA [None]
  - NASOPHARYNGITIS [None]
  - PAIN [None]
  - MUSCLE SPASMS [None]
  - FATIGUE [None]
  - HAEMATURIA [None]
  - ABDOMINAL PAIN [None]
  - OEDEMA PERIPHERAL [None]
  - PYREXIA [None]
  - MOOD ALTERED [None]
  - HEPATIC CYST [None]
  - DEPRESSION [None]
  - RENAL IMPAIRMENT [None]
